FAERS Safety Report 13911062 (Version 2)
Quarter: 2017Q3

REPORT INFORMATION
  Report Type: Spontaneous
  Country: US (occurrence: US)
  Receive Date: 20170828
  Receipt Date: 20170922
  Transmission Date: 20171127
  Serious: No
  Sender: FDA-Public Use
  Company Number: PHEH2017US027131

PATIENT
  Sex: Male

DRUGS (1)
  1. OXISTAT [Suspect]
     Active Substance: OXICONAZOLE NITRATE
     Indication: RASH
     Dosage: UNK
     Route: 065
     Dates: start: 2013

REACTIONS (1)
  - Rash [Not Recovered/Not Resolved]
